FAERS Safety Report 22289747 (Version 1)
Quarter: 2023Q2

REPORT INFORMATION
  Report Type: Spontaneous
  Country: US (occurrence: None)
  Receive Date: 20230504
  Receipt Date: 20230504
  Transmission Date: 20230721
  Serious: Yes (Other)
  Sender: FDA-Public Use
  Company Number: None

PATIENT
  Age: 45 Year
  Sex: Female
  Weight: 49.5 kg

DRUGS (8)
  1. CLONAZEPAM [Suspect]
     Active Substance: CLONAZEPAM
     Indication: Muscle spasms
     Dosage: FREQUENCY : 3 TIMES A DAY;?
     Route: 048
     Dates: start: 20230412
  2. CLONAZEPAM [Concomitant]
     Active Substance: CLONAZEPAM
  3. LISINOPRIL [Concomitant]
     Active Substance: LISINOPRIL
  4. HUMALOG [Concomitant]
     Active Substance: INSULIN LISPRO
  5. TRESIBA [Concomitant]
     Active Substance: INSULIN DEGLUDEC
  6. Dexcom G6 [Concomitant]
  7. Differin topical gel [Concomitant]
  8. IRON\VITAMINS [Concomitant]
     Active Substance: IRON\VITAMINS

REACTIONS (2)
  - Neuralgia [None]
  - Product quality issue [None]

NARRATIVE: CASE EVENT DATE: 20230412
